FAERS Safety Report 6585324-4 (Version None)
Quarter: 2010Q1

REPORT INFORMATION
  Report Type: 
  Country: None (occurrence: None)
  Receive Date: 20100216
  Receipt Date: 20100216
  Transmission Date: 20100710
  Serious: No
  Sender: FDA-Public Use
  Company Number: None

PATIENT
  Sex: Female

DRUGS (1)
  1. LEVETIRACETAM [Suspect]
     Dosage: 500MG 5/DAY PO 2-3 MO
     Route: 048

REACTIONS (4)
  - CONDITION AGGRAVATED [None]
  - CONVULSION [None]
  - DRUG INTOLERANCE [None]
  - PRODUCT SUBSTITUTION ISSUE [None]
